FAERS Safety Report 18497675 (Version 3)
Quarter: 2021Q1

REPORT INFORMATION
  Report Type: Spontaneous
  Country: US (occurrence: US)
  Receive Date: 20201112
  Receipt Date: 20210312
  Transmission Date: 20210419
  Serious: Yes (Other)
  Sender: FDA-Public Use
  Company Number: US-PFIZER INC-2020236423

PATIENT
  Age: 75 Year
  Sex: Female
  Weight: 61 kg

DRUGS (3)
  1. ENTRESTO [Concomitant]
     Active Substance: SACUBITRIL\VALSARTAN
     Dosage: UNK
  2. LYRICA CR [Suspect]
     Active Substance: PREGABALIN
     Indication: NEUROPATHY PERIPHERAL
     Dosage: 330 MG, TWICE A DAY (TAKE ONE IN THE AM AND ONE IN THE PM BY MOUTH)
     Route: 048
  3. ELIQUIS [Concomitant]
     Active Substance: APIXABAN
     Indication: CARDIAC FAILURE CONGESTIVE
     Dosage: UNK

REACTIONS (8)
  - Off label use [Unknown]
  - Impaired healing [Unknown]
  - Fall [Unknown]
  - Joint injury [Unknown]
  - Discomfort [Unknown]
  - Neuropathy peripheral [Unknown]
  - Insomnia [Unknown]
  - COVID-19 [Unknown]
